FAERS Safety Report 22219739 (Version 1)
Quarter: 2023Q2

REPORT INFORMATION
  Report Type: Spontaneous
  Country: JP (occurrence: JP)
  Receive Date: 20230417
  Receipt Date: 20230417
  Transmission Date: 20230721
  Serious: Yes (Other)
  Sender: FDA-Public Use
  Company Number: JP-MYLANLABS-2023M1036768

PATIENT
  Age: 72 Year
  Sex: Male

DRUGS (1)
  1. FAMCICLOVIR [Suspect]
     Active Substance: FAMCICLOVIR
     Indication: Herpes zoster disseminated
     Dosage: UNK
     Route: 065

REACTIONS (1)
  - Drug ineffective [Unknown]
